FAERS Safety Report 9256404 (Version 2)
Quarter: 2013Q4

REPORT INFORMATION
  Report Type: Report from Study
  Country: ZA (occurrence: ZA)
  Receive Date: 20130426
  Receipt Date: 20131105
  Transmission Date: 20140711
  Serious: Yes (Death, Hospitalization)
  Sender: FDA-Public Use
  Company Number: ZA-ROCHE-1218354

PATIENT
  Age: 70 Year
  Sex: Female

DRUGS (6)
  1. MIRCERA [Suspect]
     Indication: NEPHROGENIC ANAEMIA
     Route: 058
     Dates: start: 201211
  2. MIRCERA [Suspect]
     Route: 058
     Dates: start: 201305, end: 201307
  3. MIRCERA [Suspect]
     Route: 058
     Dates: start: 201109
  4. MIRCERA [Suspect]
     Route: 058
     Dates: start: 201205
  5. VENOFER [Concomitant]
     Route: 042
  6. COSMOFER [Concomitant]
     Route: 042

REACTIONS (3)
  - Sepsis [Fatal]
  - Anaemia [Unknown]
  - Haematuria [Unknown]
